FAERS Safety Report 12336290 (Version 1)
Quarter: 2016Q2

REPORT INFORMATION
  Report Type: Spontaneous
  Country: US (occurrence: None)
  Receive Date: 20160504
  Receipt Date: 20160504
  Transmission Date: 20160815
  Serious: Yes (Disabling, Other)
  Sender: FDA-Public Use
  Company Number: None

PATIENT
  Age: 20 Year
  Sex: Male
  Weight: 79.38 kg

DRUGS (2)
  1. VITAMIN D [Concomitant]
     Active Substance: CHOLECALCIFEROL
  2. CLARAVIS [Suspect]
     Active Substance: ISOTRETINOIN
     Indication: ACNE
     Route: 048

REACTIONS (14)
  - Abdominal discomfort [None]
  - Alopecia [None]
  - Disturbance in attention [None]
  - Chest pain [None]
  - Hepatic enzyme increased [None]
  - Obsessive-compulsive disorder [None]
  - Asthenia [None]
  - Dry skin [None]
  - Blood testosterone decreased [None]
  - Primary insulin like growth factor-1 deficiency [None]
  - Feeling abnormal [None]
  - Depression [None]
  - Libido decreased [None]
  - Arthralgia [None]

NARRATIVE: CASE EVENT DATE: 20120831
